FAERS Safety Report 9796893 (Version 6)
Quarter: 2014Q2

REPORT INFORMATION
  Report Type: Report from Study
  Country: US (occurrence: US)
  Receive Date: 20140104
  Receipt Date: 20140409
  Transmission Date: 20141212
  Serious: Yes (Hospitalization, Other)
  Sender: FDA-Public Use
  Company Number: US-BRISTOL-MYERS SQUIBB COMPANY-19944438

PATIENT
  Age: 74 Year
  Sex: Male
  Weight: 96.5 kg

DRUGS (16)
  1. IPILIMUMAB [Suspect]
     Indication: METASTATIC MALIGNANT MELANOMA
     Dosage: ONGOING
     Route: 042
     Dates: start: 20131121
  2. VITAMIN D3 [Concomitant]
     Dosage: ONGOING
     Dates: start: 20130602
  3. FENOFIBRATE [Concomitant]
     Dosage: ONGOING
     Dates: start: 20130602
  4. GLYBURIDE [Concomitant]
     Dosage: ONGOING
     Dates: start: 20130602
  5. LISINOPRIL [Concomitant]
     Dosage: ONGOING
     Dates: start: 20130602
  6. METFORMIN [Concomitant]
     Dosage: ONGOING
     Dates: start: 20130602
  7. MULTIVITAMIN [Concomitant]
     Dates: start: 20130602
  8. ACTOS [Concomitant]
     Dates: start: 20130602
  9. SIMVASTATIN [Concomitant]
     Dosage: ONGOING
     Dates: start: 20130602
  10. OXYCODONE [Concomitant]
     Dosage: ONGOING
     Dates: start: 20131114
  11. PREDNISOLONE [Concomitant]
  12. BACTRIM [Concomitant]
  13. FENTANYL PATCH [Concomitant]
  14. HYDROMORPHONE [Concomitant]
  15. SOLU-MEDROL [Concomitant]
  16. VANCOMYCIN [Concomitant]

REACTIONS (3)
  - Mental status changes [Recovered/Resolved]
  - Renal failure [Recovered/Resolved]
  - Colitis [Recovered/Resolved with Sequelae]
